FAERS Safety Report 14098374 (Version 1)
Quarter: 2017Q4

REPORT INFORMATION
  Report Type: Report from Study
  Country: US (occurrence: US)
  Receive Date: 20171016
  Receipt Date: 20171016
  Transmission Date: 20180321
  Serious: No
  Sender: FDA-Public Use
  Company Number: US-AMGEN-USASP2017005685

PATIENT
  Age: 67 Year
  Sex: Female
  Weight: 62.59 kg

DRUGS (2)
  1. PROLIA [Suspect]
     Active Substance: DENOSUMAB
     Indication: OSTEOPOROSIS POSTMENOPAUSAL
     Dosage: 60 MG, UNK
     Route: 058
     Dates: start: 20160526
  2. PROLIA [Suspect]
     Active Substance: DENOSUMAB
     Dosage: 60 MG, UNK
     Route: 058

REACTIONS (3)
  - Mitral valve prolapse [Unknown]
  - Head discomfort [Unknown]
  - Joint crepitation [Unknown]

NARRATIVE: CASE EVENT DATE: 2017
